FAERS Safety Report 4981987-5 (Version None)
Quarter: 2006Q2

REPORT INFORMATION
  Report Type: 
  Country: None (occurrence: None)
  Receive Date: 20060425
  Receipt Date: 20050913
  Transmission Date: 20061013
  Serious: Yes (Hospitalization)
  Sender: FDA-Public Use
  Company Number: US-MERCK-0509USA01720

PATIENT
  Age: 49 Year
  Sex: Male
  Weight: 86 kg

DRUGS (7)
  1. VIOXX [Suspect]
     Indication: ARTHRITIS
     Route: 048
     Dates: start: 20040101, end: 20040824
  2. VIAGRA [Concomitant]
     Route: 065
  3. VIAGRA [Concomitant]
     Route: 065
  4. ZITHROMAX [Concomitant]
     Route: 065
  5. PLAVIX [Concomitant]
     Route: 065
  6. TOPROL-XL [Concomitant]
     Route: 065
  7. [THERAPY UNSPECIFIED] [Concomitant]
     Route: 065

REACTIONS (4)
  - ANGINA PECTORIS [None]
  - CARDIAC DISORDER [None]
  - DEPRESSION [None]
  - PAIN [None]
